FAERS Safety Report 13858213 (Version 1)
Quarter: 2017Q3

REPORT INFORMATION
  Report Type: Spontaneous
  Country: US (occurrence: US)
  Receive Date: 20170811
  Receipt Date: 20170811
  Transmission Date: 20171127
  Serious: Yes (Other)
  Sender: FDA-Public Use
  Company Number: US-HETERO CORPORATE-HET2017US00072

PATIENT
  Sex: Female

DRUGS (1)
  1. INDOMETHACIN. [Suspect]
     Active Substance: INDOMETHACIN
     Indication: NEURAL TUBE DEFECT
     Dosage: 50 MG
     Route: 048

REACTIONS (2)
  - Exposure during pregnancy [Unknown]
  - Ductus arteriosus premature closure [Recovered/Resolved]
